FAERS Safety Report 15037110 (Version 1)
Quarter: 2018Q2

REPORT INFORMATION
  Report Type: Report from Study
  Country: CL (occurrence: CL)
  Receive Date: 20180620
  Receipt Date: 20180620
  Transmission Date: 20180711
  Serious: Yes (Other)
  Sender: FDA-Public Use
  Company Number: CL-SA-2018SA000328

PATIENT
  Age: 14 Year
  Sex: Female
  Weight: 58 kg

DRUGS (11)
  1. BLINDED INSULIN GLARGINE/LIXISENATIDE [Suspect]
     Active Substance: INSULIN GLARGINE\LIXISENATIDE
     Indication: TYPE 1 DIABETES MELLITUS
     Dosage: 38 DF,QD
     Route: 058
     Dates: start: 20170529, end: 20180119
  2. BLINDED INSULIN GLARGINE/LIXISENATIDE [Suspect]
     Active Substance: INSULIN GLARGINE\LIXISENATIDE
     Indication: TYPE 1 DIABETES MELLITUS
     Dosage: 38 DF,QD
     Route: 058
     Dates: start: 20170529, end: 20180119
  3. BLINDED INSULIN LISPRO [Suspect]
     Active Substance: INSULIN LISPRO
     Indication: TYPE 1 DIABETES MELLITUS
     Dosage: 38 DF,QD
     Route: 058
     Dates: start: 20170529, end: 20180119
  4. BLINDED NO STUDY DRUG GIVEN [Suspect]
     Active Substance: INVESTIGATIONAL PRODUCT
     Indication: TYPE 1 DIABETES MELLITUS
     Dosage: 38 DF,QD
     Route: 058
     Dates: start: 20170529, end: 20180119
  5. BLINDED INSULIN ASPART [Suspect]
     Active Substance: INSULIN ASPART
     Indication: TYPE 1 DIABETES MELLITUS
     Dosage: 38 DF,QD
     Route: 058
     Dates: start: 20170529, end: 20180119
  6. BLINDED INSULIN HUMAN [Suspect]
     Active Substance: INSULIN HUMAN
     Indication: TYPE 1 DIABETES MELLITUS
     Dosage: 38 DF,QD
     Route: 058
     Dates: start: 20170529, end: 20180119
  7. INSULIN GLULISINE [Suspect]
     Active Substance: INSULIN GLULISINE
     Indication: TYPE 1 DIABETES MELLITUS
     Dosage: UNK UNK,PRN
     Route: 058
     Dates: start: 20110701
  8. BLINDED INSULIN GLARGINE/LIXISENATIDE [Suspect]
     Active Substance: INSULIN GLARGINE\LIXISENATIDE
     Indication: TYPE 1 DIABETES MELLITUS
     Dosage: 38 DF,QD
     Route: 058
     Dates: start: 20170529, end: 20180119
  9. BLINDED INSULIN LISPRO [Suspect]
     Active Substance: INSULIN LISPRO
     Indication: TYPE 1 DIABETES MELLITUS
     Dosage: 38 DF,QD
     Route: 058
     Dates: start: 20170529, end: 20180119
  10. BLINDED INSULIN [Suspect]
     Active Substance: INSULIN NOS
     Indication: TYPE 1 DIABETES MELLITUS
     Dosage: 38 DF,QD
     Route: 058
     Dates: start: 20170529, end: 20180119
  11. BLINDED INSULIN ASPART [Suspect]
     Active Substance: INSULIN ASPART
     Indication: TYPE 1 DIABETES MELLITUS
     Dosage: 38 DF,QD
     Route: 058
     Dates: start: 20170529, end: 20180119

REACTIONS (1)
  - Alanine aminotransferase increased [Not Recovered/Not Resolved]

NARRATIVE: CASE EVENT DATE: 20171227
